FAERS Safety Report 15525097 (Version 6)
Quarter: 2019Q1

REPORT INFORMATION
  Report Type: Report from Study
  Country: DK (occurrence: DK)
  Receive Date: 20181018
  Receipt Date: 20190213
  Transmission Date: 20190417
  Serious: Yes (Hospitalization)
  Sender: FDA-Public Use
  Company Number: DK-ROCHE-2198330

PATIENT
  Age: 71 Year
  Sex: Male
  Weight: 80.9 kg

DRUGS (14)
  1. COZAAR COMP [Concomitant]
     Active Substance: HYDROCHLOROTHIAZIDE\LOSARTAN POTASSIUM
     Dosage: 50+12.5 MG
     Route: 065
     Dates: start: 20180906, end: 20181026
  2. INDOMETHACIN. [Concomitant]
     Active Substance: INDOMETHACIN
     Route: 065
     Dates: start: 20180917
  3. TAVEGYL [Concomitant]
     Active Substance: CLEMASTINE FUMARATE
     Route: 065
     Dates: start: 20180917
  4. HALCION [Concomitant]
     Active Substance: TRIAZOLAM
     Route: 065
     Dates: start: 20180907
  5. RO 6874281 (FAP IL2V MAB) [Suspect]
     Active Substance: RO-6874281
     Dosage: DOSE REDUCED
     Route: 042
     Dates: start: 20181029
  6. PETHIDIN [Concomitant]
     Active Substance: MEPERIDINE
     Route: 065
     Dates: start: 20180917
  7. RO 6874281 (FAP IL2V MAB) [Suspect]
     Active Substance: RO-6874281
     Indication: RENAL CELL CARCINOMA
     Dosage: DATE OF LAST DOSE ADMINISTERED PRIOR TO FIRST OCCURRENCE OF INCREASED CREATININE WAS 08/OCT/2018?DAT
     Route: 042
     Dates: start: 20180917
  8. DOMPERIDON [Concomitant]
     Active Substance: DOMPERIDONE
     Route: 065
     Dates: start: 20180917
  9. ATEZOLIZUMAB. [Suspect]
     Active Substance: ATEZOLIZUMAB
     Indication: RENAL CELL CARCINOMA
     Dosage: DATE OF LAST DOSE ADMINISTERED PRIOR TO FIRST OCCURRENCE OF INCREASED CREATININE WAS 08/OCT/2018?DAT
     Route: 042
     Dates: start: 20180917
  10. BEVACIZUMAB. [Suspect]
     Active Substance: BEVACIZUMAB
     Indication: RENAL CELL CARCINOMA
     Dosage: DATE OF LAST DOSE ADMINISTERED PRIOR TO SECOND OCCURRENCE OF INCREASED CREATININE WAS 02/JAN/2019 (1
     Route: 042
     Dates: start: 20180917
  11. RANITIDIN [Concomitant]
     Active Substance: RANITIDINE HYDROCHLORIDE
     Route: 065
     Dates: start: 20180917
  12. PARACETAMOL [Concomitant]
     Active Substance: ACETAMINOPHEN
     Route: 065
     Dates: start: 20180917
  13. SILDENAFIL. [Concomitant]
     Active Substance: SILDENAFIL
     Route: 065
     Dates: start: 20170717, end: 20190102
  14. ONDANSETRON [Concomitant]
     Active Substance: ONDANSETRON
     Route: 065
     Dates: start: 20180917

REACTIONS (2)
  - Blood creatinine increased [Recovered/Resolved]
  - Blood creatinine increased [Recovered/Resolved]

NARRATIVE: CASE EVENT DATE: 20181009
